FAERS Safety Report 6551543 (Version 5)
Quarter: 2020Q3

REPORT INFORMATION
  Report Type: Spontaneous
  Country: JP (occurrence: JP)
  Receive Date: 20080213
  Receipt Date: 20200817
  Transmission Date: 20201103
  Serious: Yes (Hospitalization, Other)
  Sender: FDA-Public Use
  Company Number: PHHY2008JP01432

PATIENT
  Age: 16 Year
  Sex: Male

DRUGS (7)
  1. SIMULECT [Suspect]
     Active Substance: BASILIXIMAB
     Dosage: 20 MG, UNK
     Route: 065
  2. SIMULECT [Suspect]
     Active Substance: BASILIXIMAB
     Route: 065
  3. MYCOPHENOLATE MOFETIL. [Concomitant]
     Active Substance: MYCOPHENOLATE MOFETIL
     Indication: RENAL TRANSPLANT
     Route: 065
  4. PREDNISOLONE. [Concomitant]
     Active Substance: PREDNISOLONE
     Indication: RENAL TRANSPLANT
     Route: 065
  5. NEORAL [Suspect]
     Active Substance: CYCLOSPORINE
     Route: 065
     Dates: start: 20070411
  6. NEORAL [Suspect]
     Active Substance: CYCLOSPORINE
     Route: 065
  7. NEORAL [Suspect]
     Active Substance: CYCLOSPORINE
     Indication: RENAL TRANSPLANT
     Dosage: 50 MG/DAY
     Route: 065
     Dates: start: 20070411

REACTIONS (12)
  - Renal impairment [Unknown]
  - Focal segmental glomerulosclerosis [Unknown]
  - Biopsy kidney abnormal [Recovered/Resolved]
  - Nephropathy toxic [Recovered/Resolved]
  - Low density lipoprotein increased [Recovering/Resolving]
  - Ureteric obstruction [Unknown]
  - Drug resistance [Unknown]
  - Proteinuria [Unknown]
  - Disease recurrence [Unknown]
  - Hypoalbuminaemia [Unknown]
  - Cyst drainage [Unknown]
  - Lymphocele [Unknown]
